FAERS Safety Report 7146547-9 (Version None)
Quarter: 2010Q4

REPORT INFORMATION
  Report Type: 
  Country: None (occurrence: None)
  Receive Date: 20101208
  Receipt Date: 20101201
  Transmission Date: 20110411
  Serious: Yes (Hospitalization)
  Sender: FDA-Public Use
  Company Number: US-AMGEN-KDL437091

PATIENT

DRUGS (1)
  1. ENBREL [Suspect]
     Indication: RHEUMATOID ARTHRITIS
     Dosage: 50 MG, QWK
     Route: 058
     Dates: start: 20100225

REACTIONS (5)
  - CORONARY ARTERY OCCLUSION [None]
  - DEVICE MALFUNCTION [None]
  - FATIGUE [None]
  - INJECTION SITE DISCOMFORT [None]
  - INJECTION SITE HAEMORRHAGE [None]
